FAERS Safety Report 14869702 (Version 1)
Quarter: 2018Q2

REPORT INFORMATION
  Report Type: Spontaneous
  Country: CA (occurrence: CA)
  Receive Date: 20180509
  Receipt Date: 20180509
  Transmission Date: 20180711
  Serious: Yes (Death)
  Sender: FDA-Public Use
  Company Number: CA-JNJFOC-20180509719

PATIENT
  Age: 26 Year
  Sex: Male

DRUGS (2)
  1. XARELTO [Suspect]
     Active Substance: RIVAROXABAN
     Indication: DEEP VEIN THROMBOSIS
     Route: 048
  2. NAPROSYN-E [Concomitant]
     Route: 065

REACTIONS (3)
  - Pulmonary embolism [Fatal]
  - Cardio-respiratory arrest [Fatal]
  - Intracardiac thrombus [Fatal]
